FAERS Safety Report 8898997 (Version 1)
Quarter: 2012Q4

REPORT INFORMATION
  Report Type: 
  Country: US (occurrence: US)
  Receive Date: 20121108
  Receipt Date: 20121108
  Transmission Date: 20130627
  Serious: No
  Sender: FDA-Public Use
  Company Number: US-AMGEN-USASP2012034674

PATIENT
  Sex: Female
  Weight: 48.53 kg

DRUGS (4)
  1. ENBREL [Suspect]
     Indication: PRODUCT USED FOR UNKNOWN INDICATION
     Dosage: 25 mg, 2 times/wk
     Route: 058
  2. ANAFRANIL [Concomitant]
     Dosage: 25 mg, UNK
  3. DEXILANT [Concomitant]
     Dosage: 30 mg, UNK
  4. CALCIUM + VIT D [Concomitant]

REACTIONS (5)
  - Gastrointestinal disorder [Unknown]
  - Nausea [Unknown]
  - Vomiting [Unknown]
  - Back pain [Unknown]
  - White blood cell count decreased [Unknown]
